FAERS Safety Report 21606688 (Version 1)
Quarter: 2022Q4

REPORT INFORMATION
  Report Type: Report from Study
  Country: US (occurrence: US)
  Receive Date: 20221117
  Receipt Date: 20221117
  Transmission Date: 20230112
  Serious: Yes (Hospitalization)
  Sender: FDA-Public Use
  Company Number: US-ABBVIE-4202067

PATIENT
  Sex: Male

DRUGS (4)
  1. SKYRIZI [Suspect]
     Active Substance: RISANKIZUMAB-RZAA
     Indication: Psoriasis
     Dosage: STRENGTH - 150 MG
     Route: 058
     Dates: start: 20210427
  2. TORVASTATIN CALCIUM [Concomitant]
     Indication: Product used for unknown indication
  3. LACTULOSE [Concomitant]
     Active Substance: LACTULOSE
     Indication: Product used for unknown indication
     Dosage: 10 G115 ML SOLUTION
  4. XIFAXAN [Concomitant]
     Active Substance: RIFAXIMIN
     Indication: Product used for unknown indication

REACTIONS (4)
  - Hepatic enzyme increased [Unknown]
  - Acute kidney injury [Unknown]
  - Oesophageal haemorrhage [Unknown]
  - Ammonia increased [Unknown]
